FAERS Safety Report 23582266 (Version 2)
Quarter: 2024Q1

REPORT INFORMATION
  Report Type: Spontaneous
  Country: US (occurrence: US)
  Receive Date: 20240229
  Receipt Date: 20240319
  Transmission Date: 20240410
  Serious: No
  Sender: FDA-Public Use
  Company Number: US-SANOFI-01956426

PATIENT
  Age: 47 Year
  Sex: Male
  Weight: 65.7 kg

DRUGS (2)
  1. DUPIXENT [Suspect]
     Active Substance: DUPILUMAB
     Indication: Dermatitis atopic
     Dosage: UNK, 1X
  2. DUPIXENT [Suspect]
     Active Substance: DUPILUMAB
     Dosage: 300 MG
     Dates: start: 20240124

REACTIONS (4)
  - Lymphadenitis [Recovered/Resolved]
  - Condition aggravated [Recovered/Resolved]
  - Subcutaneous abscess [Recovered/Resolved]
  - Lymph node pain [Unknown]
